FAERS Safety Report 15518711 (Version 2)
Quarter: 2018Q4

REPORT INFORMATION
  Report Type: Spontaneous
  Country: US (occurrence: US)
  Receive Date: 20181017
  Receipt Date: 20181129
  Transmission Date: 20190205
  Serious: No
  Sender: FDA-Public Use
  Company Number: US-SA-2018SA136640

PATIENT
  Age: 35 Year
  Sex: Male

DRUGS (1)
  1. DUPIXENT [Suspect]
     Active Substance: DUPILUMAB
     Indication: DERMATITIS ATOPIC
     Dosage: 300 MG,BIW
     Route: 058
     Dates: start: 20180312

REACTIONS (7)
  - Dry skin [Unknown]
  - Eye pain [Recovering/Resolving]
  - Headache [Recovering/Resolving]
  - Product dose omission [Unknown]
  - Drug ineffective [Unknown]
  - Dermatitis [Unknown]
  - Skin exfoliation [Unknown]

NARRATIVE: CASE EVENT DATE: 201805
